FAERS Safety Report 19462467 (Version 1)
Quarter: 2021Q2

REPORT INFORMATION
  Report Type: Spontaneous
  Country: US (occurrence: US)
  Receive Date: 20210625
  Receipt Date: 20210625
  Transmission Date: 20210717
  Serious: Yes (Hospitalization)
  Sender: FDA-Public Use
  Company Number: US-ROCHE-2858422

PATIENT
  Sex: Male

DRUGS (1)
  1. XELODA [Suspect]
     Active Substance: CAPECITABINE
     Indication: RECTAL CANCER
     Dosage: 2000 MG IN THE MORNING AND 1500 MG IN THE EVENING FOR 14 DAYS OF 21 DAYS CYCLE
     Route: 048
     Dates: start: 20210202

REACTIONS (1)
  - Malaise [Unknown]
